FAERS Safety Report 6825310-X (Version None)
Quarter: 2010Q3

REPORT INFORMATION
  Report Type: 
  Country: None (occurrence: None)
  Receive Date: 20100708
  Receipt Date: 20061215
  Transmission Date: 20110219
  Serious: No
  Sender: FDA-Public Use
  Company Number: US-PFIZER INC-2006153979

PATIENT
  Age: 39 Year
  Sex: Female
  Weight: 54.43 kg

DRUGS (3)
  1. CHANTIX [Suspect]
     Indication: SMOKING CESSATION THERAPY
     Dates: start: 20061001
  2. ZOLOFT [Concomitant]
  3. XANAX [Concomitant]

REACTIONS (2)
  - ABNORMAL DREAMS [None]
  - WEIGHT INCREASED [None]
